FAERS Safety Report 14528727 (Version 1)
Quarter: 2018Q1

REPORT INFORMATION
  Report Type: Spontaneous
  Country: US (occurrence: US)
  Receive Date: 20180214
  Receipt Date: 20180214
  Transmission Date: 20180509
  Serious: No
  Sender: FDA-Public Use
  Company Number: US-ELI_LILLY_AND_COMPANY-US201802003649

PATIENT
  Sex: Male

DRUGS (2)
  1. STRATTERA [Suspect]
     Active Substance: ATOMOXETINE HYDROCHLORIDE
     Indication: PRODUCT USED FOR UNKNOWN INDICATION
     Dosage: UNK UNK, UNKNOWN
     Route: 065
  2. LAMISIL [Interacting]
     Active Substance: TERBINAFINE HYDROCHLORIDE
     Indication: TINEA INFECTION

REACTIONS (3)
  - Tinea infection [Unknown]
  - Insomnia [Unknown]
  - Drug interaction [Unknown]
